FAERS Safety Report 7910700-4 (Version None)
Quarter: 2011Q4

REPORT INFORMATION
  Report Type: 
  Country: None (occurrence: None)
  Receive Date: 20111111
  Receipt Date: 20111107
  Transmission Date: 20120403
  Serious: Yes (Death)
  Sender: FDA-Public Use
  Company Number: CA-ASTRAZENECA-2011SE67349

PATIENT
  Age: 66 Year
  Sex: Male

DRUGS (2)
  1. BRILINTA [Suspect]
     Route: 048
  2. ASPIRIN [Suspect]
     Route: 065

REACTIONS (1)
  - PULMONARY HAEMORRHAGE [None]
